FAERS Safety Report 9837650 (Version 1)
Quarter: 2014Q1

REPORT INFORMATION
  Report Type: Spontaneous
  Country: BR (occurrence: BR)
  Receive Date: 20140123
  Receipt Date: 20140123
  Transmission Date: 20141002
  Serious: Yes (Death, Life-Threatening, Hospitalization, Disabling)
  Sender: FDA-Public Use
  Company Number: BR-B.I. PHARMACEUTICALS,INC./RIDGEFIELD-2014-BI-02569BR

PATIENT
  Age: 91 Year
  Sex: Female

DRUGS (7)
  1. PRADAXA [Suspect]
     Indication: ANTICOAGULANT THERAPY
     Dosage: 220 MG
     Route: 048
     Dates: start: 201312, end: 20131231
  2. PROLOPA [Concomitant]
     Indication: PARKINSON^S DISEASE
  3. ERANZ [Concomitant]
     Indication: DEMENTIA ALZHEIMER^S TYPE
  4. PURAN T4 [Concomitant]
     Indication: THYROID DISORDER
  5. ANCORON [Concomitant]
     Indication: ARRHYTHMIA
  6. PANTOPRAZOL [Concomitant]
     Indication: ULCER
  7. ESPIRONOLACTONA [Concomitant]
     Indication: DIURETIC THERAPY

REACTIONS (1)
  - Pneumonia [Fatal]
